FAERS Safety Report 17316542 (Version 1)
Quarter: 2020Q1

REPORT INFORMATION
  Report Type: Report from Study
  Country: CA (occurrence: CA)
  Receive Date: 20200124
  Receipt Date: 20200124
  Transmission Date: 20200409
  Serious: Yes (Hospitalization)
  Sender: FDA-Public Use
  Company Number: CA-JNJFOC-20200123611

PATIENT
  Sex: Male

DRUGS (2)
  1. REMICADE [Suspect]
     Active Substance: INFLIXIMAB
     Indication: CROHN^S DISEASE
     Dosage: MOTHER^S DOSING
     Route: 064
  2. DOMPERIDONE [Concomitant]
     Active Substance: DOMPERIDONE
     Indication: LACTATION DISORDER
     Dosage: MOTHER^S DOSING
     Dates: start: 20200104

REACTIONS (2)
  - Jaundice neonatal [Unknown]
  - Foetal exposure during pregnancy [Recovered/Resolved]

NARRATIVE: CASE EVENT DATE: 202001
